FAERS Safety Report 5066340-0 (Version None)
Quarter: 2006Q3

REPORT INFORMATION
  Report Type: 
  Country: None (occurrence: None)
  Receive Date: 20060719
  Receipt Date: 20060126
  Transmission Date: 20061208
  Serious: No
  Sender: FDA-Public Use
  Company Number: 06P-163-0323546-00

PATIENT
  Sex: Female

DRUGS (3)
  1. RITONAVIR SOFT GELATIN CAPSULES (NORVIR) (RITONAVIR) [Suspect]
     Indication: HIV INFECTION
     Dosage: 100 MG, PER ORAL
     Route: 048
  2. APTIVUS [Suspect]
     Indication: HIV INFECTION
     Dosage: 250 MG, PER ORAL
     Route: 048
  3. DIDANOSINE [Suspect]
     Indication: HIV INFECTION
     Dosage: 100 MG, PER ORAL
     Route: 048

REACTIONS (3)
  - HEPATOMEGALY [None]
  - LIVER FUNCTION TEST ABNORMAL [None]
  - PANCREATITIS [None]
